FAERS Safety Report 6038322-3 (Version None)
Quarter: 2009Q1

REPORT INFORMATION
  Report Type: 
  Country: None (occurrence: None)
  Receive Date: 20090114
  Receipt Date: 20090114
  Transmission Date: 20090719
  Serious: Yes (Other)
  Sender: FDA-Public Use
  Company Number: None

PATIENT
  Age: 3 Year
  Sex: Male
  Weight: 19.9583 kg

DRUGS (2)
  1. MONTELUKAST SODIUM [Suspect]
     Indication: MULTIPLE ALLERGIES
     Dosage: 60 1 TAB DAILY PO
     Route: 048
     Dates: start: 20080828, end: 20081211
  2. MONTELUKAST SODIUM [Suspect]
     Indication: MULTIPLE ALLERGIES
     Dosage: 60 1 TAB DAILY PO
     Route: 048
     Dates: start: 20090111

REACTIONS (4)
  - AGGRESSION [None]
  - ANGER [None]
  - ANXIETY [None]
  - SELF-INJURIOUS IDEATION [None]
